FAERS Safety Report 14594554 (Version 2)
Quarter: 2018Q2

REPORT INFORMATION
  Report Type: Report from Study
  Country: MX (occurrence: MX)
  Receive Date: 20180302
  Receipt Date: 20180415
  Transmission Date: 20180711
  Serious: Yes (Hospitalization)
  Sender: FDA-Public Use
  Company Number: PHHY2018MX032802

PATIENT
  Sex: Male
  Weight: 62 kg

DRUGS (2)
  1. EXFORGE [Suspect]
     Active Substance: AMLODIPINE BESYLATE\VALSARTAN
     Indication: HYPERTENSION
     Dosage: 1 DF, QHS (5 MG AMLODIPINE/160MG VALSARTAN)
     Route: 048
     Dates: end: 201711
  2. EXFORGE [Suspect]
     Active Substance: AMLODIPINE BESYLATE\VALSARTAN
     Dosage: 0.5 DF (AMLODIPINE 5MG AND VALSARTAN 160MG), QD
     Route: 048
     Dates: start: 201711

REACTIONS (3)
  - Wrong technique in product usage process [Unknown]
  - Bronchitis [Recovered/Resolved]
  - Drug prescribing error [Unknown]
